FAERS Safety Report 4408287-6 (Version None)
Quarter: 2004Q3

REPORT INFORMATION
  Report Type: 
  Country: None (occurrence: None)
  Receive Date: 20040722
  Receipt Date: 20040714
  Transmission Date: 20050211
  Serious: Yes (Hospitalization, Other)
  Sender: FDA-Public Use
  Company Number: 2004-07-0616

PATIENT
  Age: 71 Year
  Sex: Female

DRUGS (1)
  1. TEMODAL [Suspect]
     Indication: EPENDYMOMA
     Dosage: ORAL
     Route: 048
     Dates: start: 20031101, end: 20031201

REACTIONS (8)
  - ALOPECIA [None]
  - ANOREXIA [None]
  - DRUG TOXICITY [None]
  - FATIGUE [None]
  - LEUKAEMIA [None]
  - NAUSEA [None]
  - NEUTROPENIA [None]
  - PLATELET COUNT DECREASED [None]
